FAERS Safety Report 23020184 (Version 1)
Quarter: 2023Q4

REPORT INFORMATION
  Report Type: Spontaneous
  Country: FR (occurrence: FR)
  Receive Date: 20231003
  Receipt Date: 20231003
  Transmission Date: 20240110
  Serious: Yes (Hospitalization)
  Sender: FDA-Public Use
  Company Number: None

PATIENT
  Age: 54 Year
  Sex: Female
  Weight: 94 kg

DRUGS (11)
  1. METHOTREXATE [Suspect]
     Active Substance: METHOTREXATE
     Indication: Rheumatoid arthritis
     Dates: start: 2008, end: 20230312
  2. PREDNISONE [Suspect]
     Active Substance: PREDNISONE
     Indication: Rheumatoid arthritis
     Dates: start: 2008, end: 2019
  3. BISOPROLOL FUMARATE [Concomitant]
     Active Substance: BISOPROLOL FUMARATE
  4. TERIPARATIDE [Concomitant]
     Active Substance: TERIPARATIDE
  5. CHOLECALCIFEROL [Concomitant]
     Active Substance: CHOLECALCIFEROL
  6. FOLIC ACID [Concomitant]
     Active Substance: FOLIC ACID
  7. HYDROCORTISONE [Concomitant]
     Active Substance: HYDROCORTISONE
  8. KARDEGIC [Concomitant]
     Active Substance: ASPIRIN DL-LYSINE
  9. ATORVASTATIN [Concomitant]
     Active Substance: ATORVASTATIN
  10. ACLASTA [Concomitant]
     Active Substance: ZOLEDRONIC ACID
     Dates: start: 202011, end: 20220202
  11. ZINC GLUCONATE [Concomitant]
     Active Substance: ZINC GLUCONATE

REACTIONS (1)
  - Osteoporotic fracture [Recovering/Resolving]

NARRATIVE: CASE EVENT DATE: 20190101
